FAERS Safety Report 24011382 (Version 1)
Quarter: 2024Q2

REPORT INFORMATION
  Report Type: Spontaneous
  Country: FR (occurrence: None)
  Receive Date: 20240625
  Receipt Date: 20240625
  Transmission Date: 20240716
  Serious: Yes (Life-Threatening)
  Sender: FDA-Public Use
  Company Number: 2024A144366

PATIENT
  Sex: Female

DRUGS (1)
  1. TAGRISSO [Suspect]
     Active Substance: OSIMERTINIB
     Indication: Lung neoplasm malignant
     Route: 048
     Dates: start: 20231023

REACTIONS (10)
  - Weight decreased [Unknown]
  - Skin fissures [Unknown]
  - Onychoclasis [Unknown]
  - Pruritus [Unknown]
  - Mucosal disorder [Unknown]
  - Nasal crusting [Unknown]
  - Dry mouth [Unknown]
  - Pain in extremity [Unknown]
  - Initial insomnia [Unknown]
  - Dyspnoea exertional [Unknown]
